FAERS Safety Report 14602586 (Version 1)
Quarter: 2018Q1

REPORT INFORMATION
  Report Type: Other
  Country: DE (occurrence: DE)
  Receive Date: 20180306
  Receipt Date: 20180306
  Transmission Date: 20180509
  Serious: Yes (Death, Other)
  Sender: FDA-Public Use
  Company Number: DE-DEXPHARM-20180130

PATIENT
  Age: 68 Year
  Sex: Male

DRUGS (3)
  1. CIPROFLOXACIN. [Suspect]
     Active Substance: CIPROFLOXACIN
  2. PANTOPRAZOLE [Suspect]
     Active Substance: PANTOPRAZOLE
  3. DICLOFENAC [Suspect]
     Active Substance: DICLOFENAC

REACTIONS (1)
  - Renal tubular necrosis [Unknown]
